FAERS Safety Report 9286844 (Version 6)
Quarter: 2013Q3

REPORT INFORMATION
  Report Type: Spontaneous
  Country: US (occurrence: US)
  Receive Date: 20130513
  Receipt Date: 20130823
  Transmission Date: 20140515
  Serious: No
  Sender: FDA-Public Use
  Company Number: US-PFIZER INC-2013146587

PATIENT
  Age: 57 Year
  Sex: Male
  Weight: 102 kg

DRUGS (2)
  1. NICOTROL INHALER [Suspect]
     Indication: SMOKING CESSATION THERAPY
     Dosage: UNK
     Dates: start: 20130507
  2. NICOTROL INHALER [Suspect]
     Dosage: 10 MG, (168 INHALATIONS) TAKE AS DIRECTED
     Dates: start: 20130425

REACTIONS (6)
  - Gingival pain [Not Recovered/Not Resolved]
  - Dry mouth [Not Recovered/Not Resolved]
  - Dysgeusia [Not Recovered/Not Resolved]
  - Oropharyngeal pain [Unknown]
  - Abdominal discomfort [Unknown]
  - Drug intolerance [Unknown]
